FAERS Safety Report 9790670 (Version 2)
Quarter: 2014Q2

REPORT INFORMATION
  Report Type: Spontaneous
  Country: US (occurrence: US)
  Receive Date: 20131231
  Receipt Date: 20140612
  Transmission Date: 20141212
  Serious: Yes (Death)
  Sender: FDA-Public Use
  Company Number: US-BRISTOL-MYERS SQUIBB COMPANY-19936657

PATIENT
  Age: 46 Year
  Sex: Male

DRUGS (1)
  1. ONGLYZA TABS 2.5 MG [Suspect]

REACTIONS (1)
  - Death [Fatal]
